FAERS Safety Report 6688190-1 (Version None)
Quarter: 2010Q2

REPORT INFORMATION
  Report Type: 
  Country: None (occurrence: None)
  Receive Date: 20100420
  Receipt Date: 20100408
  Transmission Date: 20101027
  Serious: Yes (Death, Hospitalization)
  Sender: FDA-Public Use
  Company Number: DE-PFIZER INC-2009315874

PATIENT
  Age: 81 Year
  Sex: Male
  Weight: 68 kg

DRUGS (18)
  1. BLINDED *NO SUBJECT DRUG [Suspect]
     Indication: PROSTATE CANCER
     Dosage: 37.5 MG, 1X/DAY
     Route: 048
     Dates: start: 20091217, end: 20100107
  2. BLINDED *PLACEBO [Suspect]
     Indication: PROSTATE CANCER
     Dosage: 37.5 MG, 1X/DAY
     Route: 048
     Dates: start: 20091217, end: 20100107
  3. BLINDED SUNITINIB MALATE [Suspect]
     Indication: PROSTATE CANCER
     Dosage: 37.5 MG, 1X/DAY
     Route: 048
     Dates: start: 20091217, end: 20100107
  4. PREDNISONE [Suspect]
     Indication: PROSTATE CANCER
     Dosage: 5 MG, 2X/DAY
     Route: 048
     Dates: start: 20091201, end: 20100111
  5. HYDROMORPHONE [Suspect]
     Indication: PAIN
     Dosage: 32 UG, 1X/DAY
     Route: 048
     Dates: start: 20091213, end: 20091229
  6. PALLADONE [Suspect]
     Indication: PAIN
     Dosage: 26 UG, 4X/DAY
     Route: 048
     Dates: start: 20091125, end: 20091229
  7. DURAGESIC-100 [Suspect]
     Indication: PAIN
     Dosage: UNK
     Route: 061
     Dates: start: 20091229
  8. MOVICOL [Concomitant]
     Indication: CONSTIPATION
     Dosage: 2X1/TWICE DAILY
     Route: 048
     Dates: start: 20091125
  9. HALDOL [Concomitant]
     Indication: NAUSEA
     Dosage: 4 MG, 4X/DAY
     Route: 048
     Dates: start: 20091125, end: 20091229
  10. METAMIZOLE [Concomitant]
     Indication: PAIN
     Dosage: 1 G, 4X/DAY
     Route: 048
     Dates: start: 20091125, end: 20091229
  11. LYRICA [Concomitant]
     Indication: PAIN
     Dosage: 25 MG, 2X/DAY
     Route: 048
     Dates: start: 20091125, end: 20091229
  12. OMEPRAZOLE [Concomitant]
     Indication: GASTRITIS
     Dosage: 1X20MG/1X40MG, DAILY
     Route: 048
     Dates: start: 20091125
  13. PAROXETINE HCL [Concomitant]
     Indication: DEPRESSION
     Dosage: 20 MG, 2X/DAY
     Route: 048
     Dates: start: 20091125, end: 20091229
  14. METOCLOPRAMIDE [Concomitant]
     Indication: NAUSEA
     Dosage: 20 MG, 3X/DAY
     Route: 048
     Dates: start: 20091217
  15. KEVATRIL [Concomitant]
     Indication: NAUSEA
     Dosage: 4 G, 2X/DAY
     Route: 048
     Dates: start: 20091217, end: 20091229
  16. TAVOR [Concomitant]
     Indication: INSOMNIA
     Dosage: UNK
     Dates: start: 20091213, end: 20091217
  17. FUROSEMID [Concomitant]
     Indication: OEDEMA
     Dosage: 1X80 MG/1X40MD DAILY
     Route: 048
     Dates: start: 20091229
  18. SCOPOLAMINE [Concomitant]
     Indication: PAIN
     Dosage: UNK
     Route: 061
     Dates: start: 20091229

REACTIONS (5)
  - DEHYDRATION [None]
  - DISEASE PROGRESSION [None]
  - HEPATOTOXICITY [None]
  - NARCOTIC INTOXICATION [None]
  - PROSTATE CANCER [None]
